FAERS Safety Report 13641819 (Version 8)
Quarter: 2022Q3

REPORT INFORMATION
  Report Type: Spontaneous
  Country: US (occurrence: US)
  Receive Date: 20170612
  Receipt Date: 20220714
  Transmission Date: 20221027
  Serious: No
  Sender: FDA-Public Use
  Company Number: US-PFIZER INC-2017248194

PATIENT
  Age: 68 Year
  Sex: Female
  Weight: 74.376 kg

DRUGS (12)
  1. XELJANZ XR [Suspect]
     Active Substance: TOFACITINIB CITRATE
     Indication: Rheumatoid arthritis
     Dosage: 11 MG, ONCE DAILY
     Dates: start: 201703
  2. XELJANZ XR [Suspect]
     Active Substance: TOFACITINIB CITRATE
     Dosage: 11 MG, ONCE DAILY
     Dates: start: 2018
  3. PANTOPRAZOLE SODIUM [Concomitant]
     Active Substance: PANTOPRAZOLE SODIUM
     Indication: Gastrooesophageal reflux disease
     Dosage: 40 MG, 1X/DAY (SINCE YEARS AGO/15 YEARS)
  4. PRAVASTATIN SODIUM [Concomitant]
     Active Substance: PRAVASTATIN SODIUM
     Indication: Blood cholesterol
     Dosage: 80 MG, DAILY (SINCE 10 YEARS AGO)/(15 YEARS)
  5. CITRACAL PLUS D [Concomitant]
     Indication: Bone disorder
     Dosage: 1000 MG, DAILY
  6. ASPIRIN [Concomitant]
     Active Substance: ASPIRIN
     Dosage: 81 MG, DAILY
  7. VITAMIN D3 [Concomitant]
     Active Substance: CHOLECALCIFEROL
     Indication: Bone disorder
     Dosage: 1000 IU, DAILY (5 YEARS)
  8. VITAMIN D3 [Concomitant]
     Active Substance: CHOLECALCIFEROL
     Dosage: UNK (25MCG/1000 IU)
  9. LUTEIN ZEAXANTHIN [Concomitant]
     Indication: Eye disorder
     Dosage: UNK, 1X/DAY(140 SOFTGEL ONCE A DAY)
  10. METHOTREXATE [Concomitant]
     Active Substance: METHOTREXATE
     Indication: Rheumatoid arthritis
     Dosage: 5 DF, WEEKLY (SINCE 2016)
  11. METHOTREXATE [Concomitant]
     Active Substance: METHOTREXATE
     Dosage: 2.5 MG (6 TABLETS)
  12. LEUCOVORIN CALCIUM [Concomitant]
     Active Substance: LEUCOVORIN CALCIUM
     Dosage: UNK (5MG,1 DAY AFTER METHOTREXATE 1 PILL A WEEK)

REACTIONS (9)
  - Blood glucose increased [Unknown]
  - Rash [Unknown]
  - Acne [Unknown]
  - Hypoacusis [Unknown]
  - Photosensitivity reaction [Unknown]
  - Influenza [Unknown]
  - Neck pain [Unknown]
  - Pain [Unknown]
  - Intentional product misuse [Unknown]

NARRATIVE: CASE EVENT DATE: 20220101
